FAERS Safety Report 8583172-7 (Version None)
Quarter: 2012Q3

REPORT INFORMATION
  Report Type: 
  Country: None (occurrence: None)
  Receive Date: 20120809
  Receipt Date: 20120731
  Transmission Date: 20120928
  Serious: Yes (Hospitalization)
  Sender: FDA-Public Use
  Company Number: US-VERTEX PHARMACEUTICALS INC.-AE-2012-004169

PATIENT
  Sex: Male
  Weight: 142.4 kg

DRUGS (4)
  1. PEG-INTRON [Concomitant]
     Indication: HEPATITIS C
     Route: 058
     Dates: start: 20120216
  2. NORVASC [Concomitant]
     Dates: end: 20120309
  3. INCIVEK [Suspect]
     Indication: HEPATITIS C
     Route: 048
     Dates: start: 20120216, end: 20120317
  4. RIBAVIRIN [Concomitant]
     Indication: HEPATITIS C
     Route: 048
     Dates: start: 20120216, end: 20120326

REACTIONS (3)
  - GASTROINTESTINAL HAEMORRHAGE [None]
  - BLOOD URINE PRESENT [None]
  - COLONIC POLYP [None]
